FAERS Safety Report 8919882 (Version 2)
Quarter: 2012Q4

REPORT INFORMATION
  Report Type: 
  Country: US (occurrence: US)
  Receive Date: 20121121
  Receipt Date: 20121207
  Transmission Date: 20130627
  Serious: Yes (Hospitalization, Other)
  Sender: FDA-Public Use
  Company Number: US-PFIZER INC-2012290922

PATIENT
  Age: 56 Year
  Sex: Female
  Weight: 105.67 kg

DRUGS (5)
  1. LYRICA [Suspect]
     Indication: FIBROMYALGIA
     Dosage: 50 mg, 3x/day
     Route: 048
  2. ARTHROTEC [Suspect]
     Indication: ARTHRITIS
     Dosage: 75mg/200mcg, 2x/day
     Route: 048
  3. ARTHROTEC [Suspect]
     Indication: OSTEOARTHRITIS
  4. PREMARIN [Suspect]
     Indication: HORMONAL IMBALANCE
     Dosage: 0.625 mg, UNK
     Route: 048
  5. CYMBALTA [Concomitant]
     Indication: DEPRESSION
     Dosage: UNK

REACTIONS (7)
  - Rectal prolapse [Unknown]
  - Bladder prolapse [Unknown]
  - Overweight [Unknown]
  - Memory impairment [Unknown]
  - Blood iron decreased [Unknown]
  - Fall [Unknown]
  - Ligament sprain [Unknown]
